FAERS Safety Report 6937680-2 (Version None)
Quarter: 2010Q3

REPORT INFORMATION
  Report Type: 
  Country: None (occurrence: None)
  Receive Date: 20100820
  Receipt Date: 20100820
  Transmission Date: 20110219
  Serious: Yes (Hospitalization)
  Sender: FDA-Public Use
  Company Number: None

PATIENT
  Sex: Female
  Weight: 15.55 kg

DRUGS (6)
  1. PEG-L-ASPARAGINASE (PEGASPARGASE,ONCOSPAR) [Suspect]
     Dosage: 1550 IU
     Dates: end: 20100527
  2. CYCLOPHOSPHAMIDE [Suspect]
     Dosage: 570 MG
     Dates: end: 20100513
  3. CYTARABINE [Suspect]
     Dosage: 344 MG
     Dates: end: 20100527
  4. MERCAPTOPURINE [Suspect]
     Dosage: 400 MG
     Dates: end: 20100526
  5. METHOTREXATE [Suspect]
     Dosage: 30 MG
     Dates: end: 20100527
  6. VINCRISTINE [Suspect]
     Dates: end: 20100427

REACTIONS (1)
  - URTICARIA [None]
